FAERS Safety Report 7752638-1 (Version None)
Quarter: 2011Q3

REPORT INFORMATION
  Report Type: 
  Country: None (occurrence: None)
  Receive Date: 20110915
  Receipt Date: 20110909
  Transmission Date: 20111222
  Serious: Yes (Life-Threatening, Other)
  Sender: FDA-Public Use
  Company Number: JP-ROCHE-782499

PATIENT
  Sex: Male
  Weight: 12 kg

DRUGS (30)
  1. TOCILIZUMAB [Suspect]
     Route: 041
     Dates: start: 20110527, end: 20110527
  2. PREDNISOLONE [Concomitant]
     Dosage: DOSE FORM: PERORAL AGENT
     Route: 048
     Dates: start: 20100607, end: 20100609
  3. NEORAL [Concomitant]
     Dosage: DOSE FORM: PERORAL AGENT
     Route: 048
     Dates: start: 20110610, end: 20110622
  4. CANDESARTAN CILEXETIL [Concomitant]
     Dosage: DOSE FORM: PERORAL AGENT. GENERIC NAME REPORTED AS CANDESARTAN CILEXETIL.
     Route: 048
     Dates: end: 20100813
  5. TOCILIZUMAB [Suspect]
     Route: 041
     Dates: start: 20100903, end: 20110421
  6. PREDNISOLONE [Concomitant]
     Dosage: DOSE FORM: PERORAL AGENT
     Route: 048
     Dates: start: 20100520, end: 20100526
  7. PREDNISOLONE [Concomitant]
     Dosage: DOSE FORM: PERORAL AGENT
     Route: 048
     Dates: start: 20100614, end: 20100616
  8. TOCILIZUMAB [Suspect]
     Route: 041
     Dates: start: 20100604, end: 20100813
  9. PREDNISOLONE [Concomitant]
     Dosage: DOSE FORM: PERORAL AGENT
     Route: 048
     Dates: start: 20100319, end: 20100506
  10. PREDNISOLONE [Concomitant]
     Dosage: DOSE FORM: PERORAL AGENT
     Route: 048
     Dates: start: 20110610, end: 20110614
  11. NEORAL [Concomitant]
     Indication: JUVENILE ARTHRITIS
     Dosage: DOSE FORM: PERORAL AGENT
     Route: 048
     Dates: end: 20100730
  12. NEORAL [Concomitant]
     Dosage: DOSE FORM: PERORAL AGENT
     Route: 048
     Dates: start: 20110623
  13. PREDNISOLONE [Concomitant]
     Dosage: DOSE FORM: PERORAL AGENT
     Route: 048
     Dates: start: 20100531, end: 20100603
  14. METHOTREXATE [Concomitant]
     Dosage: DOSE FORM: PERORAL AGENT
     Route: 048
     Dates: end: 20100730
  15. PREDNISOLONE [Concomitant]
     Dosage: DOSE FORM: PERORAL AGENT
     Route: 048
     Dates: end: 20100318
  16. PREDNISOLONE [Concomitant]
     Dosage: DOSE FORM: PERORAL AGENT
     Route: 048
     Dates: start: 20100604, end: 20100606
  17. PREDNISOLONE [Concomitant]
     Dosage: DOSE FORM: PERORAL AGENT
     Route: 048
     Dates: start: 20110706
  18. FAMOTIDINE [Concomitant]
     Dosage: DOSE FORM: PERORAL AGENT
     Route: 048
     Dates: start: 20110610
  19. ALFAROL [Concomitant]
     Dosage: DOSE FORM: PERORAL AGENT
     Route: 048
     Dates: start: 20110610
  20. TOCILIZUMAB [Suspect]
     Route: 041
     Dates: start: 20110517, end: 20110517
  21. PREDNISOLONE [Concomitant]
     Dosage: DOSE FORM: PERORAL AGENT
     Route: 048
     Dates: start: 20100710, end: 20100715
  22. PREDNISOLONE [Concomitant]
     Dosage: DOSE FORM: PERORAL AGENT
     Route: 048
     Dates: start: 20100527, end: 20100530
  23. PREDNISOLONE [Concomitant]
     Dosage: DOSE FORM: PERORAL AGENT
     Route: 048
     Dates: start: 20100617, end: 20100709
  24. PREDNISOLONE [Concomitant]
     Dosage: DOSE FORM: PERORAL AGENT
     Route: 048
     Dates: start: 20110629, end: 20110705
  25. TOCILIZUMAB [Suspect]
     Route: 041
     Dates: start: 20110614, end: 20110712
  26. PREDNISOLONE [Concomitant]
     Dosage: DOSE FORM: PERORAL AGENT
     Route: 048
     Dates: start: 20100507, end: 20100519
  27. PREDNISOLONE [Concomitant]
     Dosage: DOSE FORM: PERORAL AGENT
     Route: 048
     Dates: start: 20100610, end: 20100613
  28. PREDNISOLONE [Concomitant]
     Dosage: DOSE FORM: PERORAL AGENT
     Route: 048
     Dates: start: 20110615, end: 20110622
  29. PREDNISOLONE [Concomitant]
     Dosage: DOSE FORM: PERORAL AGENT
     Route: 048
     Dates: start: 20110623, end: 20110628
  30. SULFAMETHOXAZOLE [Concomitant]
     Route: 048
     Dates: start: 20110608

REACTIONS (3)
  - DISSEMINATED INTRAVASCULAR COAGULATION [None]
  - FEBRILE CONVULSION [None]
  - HISTIOCYTOSIS HAEMATOPHAGIC [None]
